FAERS Safety Report 4319012-1 (Version None)
Quarter: 2004Q1

REPORT INFORMATION
  Report Type: 
  Country: None (occurrence: None)
  Receive Date: 20040315
  Receipt Date: 20040302
  Transmission Date: 20041129
  Serious: Yes (Life-Threatening, Hospitalization)
  Sender: FDA-Public Use
  Company Number: 2004014864

PATIENT
  Age: 68 Year
  Sex: Male
  Weight: 68 kg

DRUGS (9)
  1. AMLODIPINE [Suspect]
     Indication: ILL-DEFINED DISORDER
     Dosage: 5 MG (DAILY), ORAL
     Route: 048
  2. CIPROFLOXACIN [Suspect]
     Indication: ILL-DEFINED DISORDER
     Dosage: 1500 MG (TID), ORAL
     Route: 048
  3. OMEPRAZOLE [Suspect]
     Indication: ILL-DEFINED DISORDER
     Dosage: 20 MG (DAILY), ORAL
     Route: 048
  4. HEPARIN-FRACTION, CALCIUM SALT (HEPARIN-FUNCTION, CALCIUM SALT) [Suspect]
     Indication: ILL-DEFINED DISORDER
     Dosage: 15000 UNITS (DAILY), SUBCUTANEOUS
     Route: 058
  5. REPAGLINIDE (REPAGLINIDE) [Suspect]
     Indication: ILL-DEFINED DISORDER
     Dosage: ORAL
     Route: 048
  6. FUROSEMIDE [Suspect]
     Indication: ILL-DEFINED DISORDER
     Dosage: ORAL
     Route: 048
  7. METFORMIN HCL [Concomitant]
  8. HEPARIN CALCIUM [Concomitant]
  9. INITARD (INSULIN, INSULIN INJECTION, ISOPHANE) [Concomitant]

REACTIONS (4)
  - AGRANULOCYTOSIS [None]
  - BONE MARROW DEPRESSION [None]
  - SEPTIC SHOCK [None]
  - STAPHYLOCOCCAL SEPSIS [None]
